FAERS Safety Report 6278968-0 (Version None)
Quarter: 2009Q3

REPORT INFORMATION
  Report Type: 
  Country: None (occurrence: None)
  Receive Date: 20090723
  Receipt Date: 20090715
  Transmission Date: 20100115
  Serious: Yes (Hospitalization)
  Sender: FDA-Public Use
  Company Number: US-JNJFOC-20090705582

PATIENT
  Sex: Female
  Weight: 49.9 kg

DRUGS (6)
  1. DURAGESIC-100 [Suspect]
     Indication: FIBROMYALGIA
     Route: 062
  2. HYDROCODONE [Concomitant]
     Indication: PAIN
     Dosage: 40-325 MG
     Route: 048
  3. KLONOPIN [Concomitant]
     Indication: MUSCLE SPASMS
     Route: 048
  4. NATURAL THYROID [Concomitant]
     Indication: HYPOTHYROIDISM
     Route: 048
  5. TRAZODONE [Concomitant]
     Indication: SOCIAL PHOBIA
     Route: 048
  6. EFFEXOR XR [Concomitant]
     Indication: SOCIAL PHOBIA
     Route: 048

REACTIONS (6)
  - DRUG INEFFECTIVE [None]
  - HYPERTONIC BLADDER [None]
  - INAPPROPRIATE SCHEDULE OF DRUG ADMINISTRATION [None]
  - PRODUCT QUALITY ISSUE [None]
  - THROMBOTIC STROKE [None]
  - WRONG TECHNIQUE IN DRUG USAGE PROCESS [None]
